FAERS Safety Report 7027689-5 (Version None)
Quarter: 2010Q4

REPORT INFORMATION
  Report Type: 
  Country: None (occurrence: None)
  Receive Date: 20101004
  Receipt Date: 20100928
  Transmission Date: 20110411
  Serious: Yes (Other)
  Sender: FDA-Public Use
  Company Number: DE-GENENTECH-297914

PATIENT
  Sex: Male

DRUGS (5)
  1. RITUXIMAB [Suspect]
     Indication: NON-HODGKIN'S LYMPHOMA
     Dosage: UNK
     Route: 065
  2. BENDAMUSTINE [Suspect]
     Indication: NON-HODGKIN'S LYMPHOMA
     Route: 065
  3. BUDESONIDE [Concomitant]
     Indication: CROHN'S DISEASE
     Dosage: 3 MG, QAM
     Route: 048
  4. LEVOTHYROXINE SODIUM [Concomitant]
     Indication: THYROID OPERATION
     Dosage: 1 DF, QD
     Route: 048
  5. QUANTALAN [Concomitant]
     Indication: DIARRHOEA
     Dosage: 1 DF, QAM
     Route: 048

REACTIONS (1)
  - CROHN'S DISEASE [None]
